FAERS Safety Report 21490850 (Version 1)
Quarter: 2022Q4

REPORT INFORMATION
  Report Type: Spontaneous
  Country: DE (occurrence: DE)
  Receive Date: 20221021
  Receipt Date: 20221021
  Transmission Date: 20230112
  Serious: Yes (Other)
  Sender: FDA-Public Use
  Company Number: DE-ALKEM LABORATORIES LIMITED-DE-ALKEM-2022-10397

PATIENT
  Sex: Female

DRUGS (9)
  1. FINGOLIMOD [Suspect]
     Active Substance: FINGOLIMOD
     Indication: Multiple sclerosis
     Dosage: 0.5 MILLIGRAM, QD,  EVERY 1 DAY (CAPSULE, HARD)
     Route: 048
     Dates: start: 20161020
  2. CHOLECALCIFEROL [Concomitant]
     Active Substance: CHOLECALCIFEROL
     Indication: Vitamin D deficiency
     Dosage: 20 IU INTERNATIONAL UNIT(S), ONCE WEEKLY
     Route: 065
     Dates: start: 20140902
  3. METAMIZOLE SODIUM [Concomitant]
     Active Substance: METAMIZOLE SODIUM
     Indication: Pain
     Dosage: UNK
     Route: 065
     Dates: start: 20161122
  4. METAMIZOLE SODIUM [Concomitant]
     Active Substance: METAMIZOLE SODIUM
     Indication: Pyrexia
  5. PANTOPRAZOLE [Concomitant]
     Active Substance: PANTOPRAZOLE
     Indication: Abdominal discomfort
     Dosage: UNK
     Route: 065
     Dates: start: 20190211, end: 20190213
  6. ALBUTEROL [Concomitant]
     Active Substance: ALBUTEROL
     Indication: Asthma
     Dosage: UNK
     Route: 065
     Dates: start: 20061201
  7. Symbioflor [Concomitant]
     Indication: Diarrhoea
     Dosage: UNK, QD, EVERY 1 DAY
     Route: 065
     Dates: start: 20161122
  8. ZOPICLONE [Concomitant]
     Active Substance: ZOPICLONE
     Indication: Sleep disorder
     Dosage: 3.75 MILLIGRAM,TABLET (UNCOATED, ORAL)
     Route: 048
     Dates: start: 20190211
  9. ZOPICLONE [Concomitant]
     Active Substance: ZOPICLONE
     Indication: Insomnia
     Dosage: 1 DOSAGE FORM,TABLET (UNCOATED, ORAL)
     Route: 048
     Dates: start: 20190201

REACTIONS (10)
  - Multiple sclerosis relapse [Not Recovered/Not Resolved]
  - Respiratory tract infection [Recovered/Resolved]
  - Asthenia [Recovered/Resolved]
  - Blood pressure diastolic increased [Unknown]
  - Hypertension [Unknown]
  - Nasopharyngitis [Recovered/Resolved]
  - Pain in extremity [Recovered/Resolved]
  - Pyrexia [Recovered/Resolved]
  - Oedema [Recovered/Resolved]
  - Weight increased [Recovered/Resolved]

NARRATIVE: CASE EVENT DATE: 20170725
